FAERS Safety Report 24080252 (Version 1)
Quarter: 2024Q3

REPORT INFORMATION
  Report Type: Spontaneous
  Country: FR (occurrence: FR)
  Receive Date: 20240711
  Receipt Date: 20240711
  Transmission Date: 20241017
  Serious: Yes (Hospitalization)
  Sender: SANDOZ
  Company Number: None

PATIENT
  Age: 75 Year
  Sex: Male
  Weight: 87 kg

DRUGS (2)
  1. KEYTRUDA [Suspect]
     Active Substance: PEMBROLIZUMAB
     Indication: Lung cancer metastatic
     Dosage: 200 MG, TIW
     Route: 042
     Dates: start: 20231024, end: 20240517
  2. PEMETREXED [Suspect]
     Active Substance: PEMETREXED
     Indication: Lung cancer metastatic
     Dosage: 1000 MG, TIW
     Route: 042
     Dates: start: 20231024, end: 2024

REACTIONS (2)
  - Condition aggravated [Not Recovered/Not Resolved]
  - Intervertebral discitis [Not Recovered/Not Resolved]

NARRATIVE: CASE EVENT DATE: 20240429
